FAERS Safety Report 5281912-6 (Version None)
Quarter: 2007Q1

REPORT INFORMATION
  Report Type: 
  Country: None (occurrence: None)
  Receive Date: 20070330
  Receipt Date: 20070327
  Transmission Date: 20070707
  Serious: Yes (Death, Other)
  Sender: FDA-Public Use
  Company Number: DE-ELI_LILLY_AND_COMPANY-DE200703003581

PATIENT
  Age: 63 Year
  Sex: Male

DRUGS (17)
  1. ZYPREXA [Suspect]
     Indication: BIPOLAR I DISORDER
     Dosage: 5 MG, DAILY (1/D)
     Route: 048
     Dates: start: 20060530
  2. ZYPREXA [Suspect]
     Dosage: 10 MG, DAILY (1/D)
     Route: 048
     Dates: start: 20060531
  3. ZYPREXA [Suspect]
     Dosage: 15 MG, DAILY (1/D)
     Route: 048
     Dates: start: 20060601, end: 20060604
  4. VALPROATE SODIUM [Concomitant]
     Dosage: 450 MG, DAILY (1/D)
     Route: 048
     Dates: start: 20060529
  5. VALPROATE SODIUM [Concomitant]
     Dosage: 600 MG, DAILY (1/D)
     Route: 048
     Dates: start: 20060530
  6. VALPROATE SODIUM [Concomitant]
     Dosage: 1200 MG, DAILY (1/D)
     Route: 048
     Dates: start: 20060601, end: 20060602
  7. VALPROATE SODIUM [Concomitant]
     Dosage: 1800 MG, DAILY (1/D)
     Route: 048
     Dates: start: 20060603, end: 20060604
  8. FLUANXOL [Concomitant]
     Dosage: 6 MG, UNK
     Route: 030
     Dates: start: 20060529, end: 20060530
  9. FLUANXOL [Concomitant]
     Dosage: 3 MG, UNK
     Route: 030
     Dates: start: 20060531, end: 20060601
  10. FLUANXOL DEPOT [Concomitant]
     Dosage: 20 MG, UNK
     Route: 030
     Dates: start: 19960101
  11. DIAZEPAM [Concomitant]
     Dosage: 30 MG, UNK
     Route: 048
     Dates: start: 20060526, end: 20060530
  12. DIAZEPAM [Concomitant]
     Dosage: 40 MG, UNK
     Route: 048
     Dates: start: 20060531, end: 20060602
  13. DIAZEPAM [Concomitant]
     Dosage: 20 MG, UNK
     Route: 048
     Dates: start: 20060603, end: 20060604
  14. PANTOZOL [Concomitant]
     Dosage: 40 MG, UNK
     Route: 048
     Dates: start: 20060604
  15. NEXIUM [Concomitant]
  16. LASIX [Concomitant]
     Dosage: 20 MG, UNK
     Route: 048
     Dates: start: 20060602, end: 20060604
  17. THIAMINE HCL [Concomitant]
     Dosage: 600 MG, DAILY (1/D)
     Route: 048
     Dates: start: 20060526, end: 20060604

REACTIONS (8)
  - AORTIC ANEURYSM RUPTURE [None]
  - BLOOD CREATINE PHOSPHOKINASE INCREASED [None]
  - BLOOD PRESSURE DECREASED [None]
  - FALL [None]
  - GAIT DISTURBANCE [None]
  - RESPIRATORY ARREST [None]
  - RESTLESSNESS [None]
  - SEDATION [None]
